FAERS Safety Report 9250956 (Version 1)
Quarter: 2013Q1

REPORT INFORMATION
  Report Type: Spontaneous
  Country: US (occurrence: None)
  Receive Date: 20130305
  Receipt Date: 20130305
  Transmission Date: 20140127
  Serious: Yes (Other)
  Sender: FDA-Public Use
  Company Number: 163-21880-12082515

PATIENT
  Age: 75 Year
  Sex: Female

DRUGS (7)
  1. REVLIMID [Suspect]
     Indication: PLASMA CELL MYELOMA
     Dosage: 21 IN 21 D
     Route: 048
     Dates: start: 20120728
  2. ACTONEL (RISEDRONATE) [Concomitant]
  3. ASPIRIN (ACETYLSALICYLIC ACID) [Concomitant]
  4. DIOVAN (VALSARTAN) [Concomitant]
  5. MORPHINE [Concomitant]
  6. OXYCODONE (OXYCODONE) [Concomitant]
  7. ZETIA (EZETIMIBE) [Concomitant]

REACTIONS (1)
  - Nausea [None]
